FAERS Safety Report 4366571-9 (Version None)
Quarter: 2004Q2

REPORT INFORMATION
  Report Type: 
  Country: None (occurrence: None)
  Receive Date: 20040524
  Receipt Date: 20040512
  Transmission Date: 20050107
  Serious: Yes (Other)
  Sender: FDA-Public Use
  Company Number: ZONI001347

PATIENT
  Age: 43 Year
  Sex: Female
  Weight: 53 kg

DRUGS (2)
  1. ZONEGRAN [Suspect]
     Indication: EPILEPSY
     Dosage: 500 MG DAILY ORAL
     Route: 048
     Dates: start: 20010703
  2. CARBAMAZEPINE [Concomitant]

REACTIONS (5)
  - BLEEDING TIME PROLONGED [None]
  - CONTUSION [None]
  - INCREASED TENDENCY TO BRUISE [None]
  - NEUTROPENIA [None]
  - WHITE BLOOD CELL COUNT DECREASED [None]
